FAERS Safety Report 4891862-2 (Version None)
Quarter: 2006Q1

REPORT INFORMATION
  Report Type: 
  Country: None (occurrence: None)
  Receive Date: 20060123
  Receipt Date: 20060112
  Transmission Date: 20060701
  Serious: Yes (Other)
  Sender: FDA-Public Use
  Company Number: 2005165746

PATIENT
  Age: 52 Year
  Sex: Female
  Weight: 92 kg

DRUGS (4)
  1. DILANTIN KAPSEAL [Suspect]
     Indication: EPILEPSY
     Dosage: 300 MG (100 MG), ORAL
     Route: 048
  2. SOLONE (PREDNISOLONE) [Concomitant]
  3. PHENOBARBITAL TAB [Concomitant]
  4. E-MYCIN (ERYTRHROMYCIN) [Concomitant]

REACTIONS (1)
  - CONVULSION [None]
